FAERS Safety Report 24421374 (Version 1)
Quarter: 2024Q4

REPORT INFORMATION
  Report Type: Spontaneous
  Country: JP (occurrence: JP)
  Receive Date: 20241010
  Receipt Date: 20241010
  Transmission Date: 20250115
  Serious: Yes (Hospitalization)
  Sender: ABBVIE
  Company Number: JP-TAKEDA-2024TJP014370

PATIENT
  Sex: Male

DRUGS (1)
  1. LEUPROLIDE ACETATE [Suspect]
     Active Substance: LEUPROLIDE ACETATE
     Indication: Prostate cancer
     Dosage: 11.25 MILLIGRAM?LEUPLIN SR FOR INJECTION KIT 11.25 MG
     Route: 058
     Dates: start: 20231119

REACTIONS (3)
  - Fracture [Recovered/Resolved]
  - Fall [Recovered/Resolved]
  - Inappropriate schedule of product administration [Unknown]
